FAERS Safety Report 16163981 (Version 1)
Quarter: 2019Q2

REPORT INFORMATION
  Report Type: Spontaneous
  Country: US (occurrence: US)
  Receive Date: 20190304
  Receipt Date: 20190304
  Transmission Date: 20190711
  Serious: No
  Sender: FDA-Public Use
  Company Number: None

PATIENT
  Age: 39 Year
  Sex: Male

DRUGS (4)
  1. GABAPENTIN. [Concomitant]
     Active Substance: GABAPENTIN
  2. INDOMETHACIN. [Concomitant]
     Active Substance: INDOMETHACIN
  3. BARACLUDE [Suspect]
     Active Substance: ENTECAVIR
     Dates: start: 201809
  4. OMEPRAZOLE. [Suspect]
     Active Substance: OMEPRAZOLE

REACTIONS (2)
  - Dry mouth [None]
  - Glossodynia [None]

NARRATIVE: CASE EVENT DATE: 20190109
